FAERS Safety Report 8843707 (Version 3)
Quarter: 2012Q4

REPORT INFORMATION
  Report Type: 
  Country: US (occurrence: US)
  Receive Date: 20121016
  Receipt Date: 20121231
  Transmission Date: 20130627
  Serious: No
  Sender: FDA-Public Use
  Company Number: US-VERTEX PHARMACEUTICAL INC.-2012-022371

PATIENT
  Age: 60 None
  Sex: Male

DRUGS (11)
  1. VX-950 (TELAPREVIR) [Suspect]
     Indication: HEPATITIS C
     Dosage: 750 mg, tid
     Route: 048
     Dates: start: 20120918, end: 20121220
  2. RIBASPHERE [Suspect]
     Indication: HEPATITIS C
     Dosage: 600 mg, bid
     Dates: start: 20120918
  3. RIBASPHERE [Suspect]
     Dosage: 600mg AM, 400mg PM
     Route: 048
  4. PEGASYS [Suspect]
     Indication: HEPATITIS C
     Dosage: 180 ?g, qw
     Route: 058
     Dates: start: 20120918
  5. CALCIUM 500+D [Concomitant]
     Dosage: 1 DF, qd
     Route: 048
  6. VITAMIN E                          /00110501/ [Concomitant]
     Dosage: 1 DF, qd
     Route: 048
  7. MILK THISTLE [Concomitant]
     Dosage: 1 DF, qd
     Route: 048
  8. FISH OIL [Concomitant]
     Dosage: 1200 ut, qd
     Route: 048
  9. MULTIVITAMIN                       /00097801/ [Concomitant]
     Dosage: 1 DF, qd
     Route: 048
  10. VITAMIN D /00107901/ [Concomitant]
     Dosage: 1 DF, qd
     Route: 048
  11. MECLIZINE                          /00072801/ [Concomitant]
     Dosage: 1 DF, qd
     Route: 048

REACTIONS (8)
  - Dizziness [Unknown]
  - Influenza like illness [Unknown]
  - Decreased appetite [Unknown]
  - Fatigue [Unknown]
  - Asthenia [Unknown]
  - Rash [Unknown]
  - Pruritus generalised [Unknown]
  - Nausea [Unknown]
